FAERS Safety Report 7298942-5 (Version None)
Quarter: 2011Q1

REPORT INFORMATION
  Report Type: 
  Country: None (occurrence: None)
  Receive Date: 20110217
  Receipt Date: 20110215
  Transmission Date: 20110831
  Serious: Yes (Hospitalization, Other)
  Sender: FDA-Public Use
  Company Number: CA-ROCHE-759827

PATIENT
  Sex: Female

DRUGS (2)
  1. PEGASYS [Suspect]
     Route: 058
     Dates: end: 20100101
  2. COPEGUS [Suspect]
     Route: 048
     Dates: end: 20100101

REACTIONS (4)
  - ANAEMIA [None]
  - HYPERCALCAEMIA [None]
  - RENAL FAILURE [None]
  - DIARRHOEA [None]
